FAERS Safety Report 24359325 (Version 1)
Quarter: 2024Q3

REPORT INFORMATION
  Report Type: Spontaneous
  Country: US (occurrence: US)
  Receive Date: 20240924
  Receipt Date: 20240924
  Transmission Date: 20241017
  Serious: No
  Sender: SANOFI AVENTIS
  Company Number: US-SA-2024SA275463

PATIENT
  Age: 76 Year

DRUGS (2)
  1. LANTUS [Suspect]
     Active Substance: INSULIN GLARGINE
     Indication: Blood glucose increased
     Dosage: 50 IU, BID
     Route: 058
  2. LANTUS [Suspect]
     Active Substance: INSULIN GLARGINE
     Dosage: 25 IU, BID
     Route: 058

REACTIONS (1)
  - Off label use [Unknown]
